FAERS Safety Report 10245355 (Version 1)
Quarter: 2014Q2

REPORT INFORMATION
  Report Type: Report from Study
  Country: FR (occurrence: FR)
  Receive Date: 20140618
  Receipt Date: 20140618
  Transmission Date: 20141212
  Serious: Yes (Hospitalization)
  Sender: FDA-Public Use
  Company Number: FR-ROCHE-1416485

PATIENT
  Sex: Female

DRUGS (41)
  1. TOCILIZUMAB [Suspect]
     Indication: RHEUMATOID ARTHRITIS
     Dosage: 8.24 MG/KG
     Route: 065
     Dates: start: 20100729
  2. TOCILIZUMAB [Suspect]
     Dosage: 8MG/KG
     Route: 065
     Dates: start: 20100831
  3. TOCILIZUMAB [Suspect]
     Dosage: 8MG/KG
     Route: 065
     Dates: start: 20100929
  4. TOCILIZUMAB [Suspect]
     Dosage: 8MG/KG
     Route: 065
     Dates: start: 20101024
  5. TOCILIZUMAB [Suspect]
     Dosage: (8.36 MG/KG)
     Route: 065
     Dates: start: 20101221
  6. TOCILIZUMAB [Suspect]
     Dosage: (8.24 MG/KG)
     Route: 065
     Dates: start: 20110120
  7. TOCILIZUMAB [Suspect]
     Dosage: (8.12 MG/KG)
     Route: 065
     Dates: start: 20110303
  8. TOCILIZUMAB [Suspect]
     Dosage: (7.89 MG/KG)
     Route: 065
     Dates: start: 20110331
  9. TOCILIZUMAB [Suspect]
     Dosage: (8.12 MG/KG)
     Route: 065
     Dates: start: 20110428
  10. TOCILIZUMAB [Suspect]
     Dosage: (7.89 MG/KG)
     Route: 065
     Dates: start: 20110531
  11. TOCILIZUMAB [Suspect]
     Dosage: (8.57 MG/KG)
     Route: 065
     Dates: start: 20110628
  12. TOCILIZUMAB [Suspect]
     Route: 065
     Dates: start: 20110803
  13. TOCILIZUMAB [Suspect]
     Route: 065
     Dates: start: 20110830
  14. TOCILIZUMAB [Suspect]
     Dosage: 7.67 MG/KG
     Route: 065
     Dates: start: 20111018
  15. TOCILIZUMAB [Suspect]
     Dosage: (7.78 MG/KG)
     Route: 065
     Dates: start: 20111122
  16. TOCILIZUMAB [Suspect]
     Dosage: (7.89MG/KG)
     Route: 065
     Dates: start: 20111220
  17. TOCILIZUMAB [Suspect]
     Route: 065
     Dates: start: 20120131
  18. TOCILIZUMAB [Suspect]
     Dosage: (7.78 MG/KG)
     Route: 065
     Dates: start: 20120322
  19. TOCILIZUMAB [Suspect]
     Dosage: (7.89 MG/KG)
     Route: 065
     Dates: start: 20120424
  20. TOCILIZUMAB [Suspect]
     Route: 065
     Dates: start: 20120614
  21. TOCILIZUMAB [Suspect]
     Dosage: 8 MG/KG
     Route: 065
     Dates: start: 20120710
  22. TOCILIZUMAB [Suspect]
     Dosage: (6.76 MG/KG)
     Route: 065
     Dates: start: 20120911
  23. TOCILIZUMAB [Suspect]
     Route: 065
     Dates: start: 20121214
  24. TOCILIZUMAB [Suspect]
     Dosage: (6.67 MG/KG)
     Route: 065
     Dates: start: 20130211
  25. TOCILIZUMAB [Suspect]
     Dosage: (6.32 MG/KG)
     Route: 065
     Dates: start: 20130312
  26. TOCILIZUMAB [Suspect]
     Route: 065
     Dates: start: 20130410
  27. TOCILIZUMAB [Suspect]
     Dosage: 6.08 MG/KG
     Route: 065
     Dates: end: 20130516
  28. TOCILIZUMAB [Suspect]
     Dosage: 7.27 MG/KG
     Route: 065
     Dates: end: 20130618
  29. TOCILIZUMAB [Suspect]
     Dosage: 7.18 MG/KG
     Route: 065
     Dates: end: 20130723
  30. OMEPRAZOLE SR [Concomitant]
     Route: 065
  31. OMEPRAZOLE SR [Concomitant]
     Route: 065
  32. OMEPRAZOLE SR [Concomitant]
     Route: 065
  33. DEROXAT [Concomitant]
     Route: 065
  34. DEROXAT [Concomitant]
     Route: 065
  35. PRAVASTATINE [Concomitant]
     Route: 065
  36. PRAVASTATINE [Concomitant]
     Route: 065
  37. APROVEL [Concomitant]
     Route: 065
  38. AMLODIPINE [Concomitant]
     Route: 065
  39. AMLODIPINE [Concomitant]
     Route: 065
  40. CALCIDOSE [Concomitant]
     Route: 065
  41. DAFALGAN CODEINE [Concomitant]
     Route: 065

REACTIONS (11)
  - Malaise [Recovered/Resolved]
  - Rheumatoid arthritis [Not Recovered/Not Resolved]
  - Herpes zoster [Not Recovered/Not Resolved]
  - Intervertebral disc degeneration [Not Recovered/Not Resolved]
  - Fall [Recovered/Resolved]
  - Head injury [Recovered/Resolved]
  - Oedema peripheral [Unknown]
  - Nocturnal dyspnoea [Unknown]
  - Ventricular hypokinesia [Not Recovered/Not Resolved]
  - Peripheral venous disease [Not Recovered/Not Resolved]
  - Immunosuppression [Not Recovered/Not Resolved]
